FAERS Safety Report 7998639-X (Version None)
Quarter: 2011Q4

REPORT INFORMATION
  Report Type: 
  Country: None (occurrence: None)
  Receive Date: 20111221
  Receipt Date: 20111221
  Transmission Date: 20120403
  Serious: Yes (Congenital Anomaly, Other)
  Sender: FDA-Public Use
  Company Number: None

PATIENT
  Age: 41 Year
  Sex: Female
  Weight: 90.718 kg

DRUGS (7)
  1. SERTRALINE HYDROCHLORIDE [Suspect]
     Indication: FIBROMYALGIA
     Dosage: 50MG
     Route: 048
     Dates: start: 20020701, end: 20111220
  2. PROMETRIUM [Concomitant]
     Route: 067
  3. ATIVAN [Concomitant]
  4. LANSOPRAZOLE [Concomitant]
     Route: 048
  5. ASPIRIN [Concomitant]
     Route: 048
  6. ACETAMINOPHEN 500MG-1000MG [Concomitant]
  7. PRENATAL VITAMINS ^CAVAN ALPHA KIT W/ DHA^ [Concomitant]
     Route: 048

REACTIONS (2)
  - ABORTION SPONTANEOUS [None]
  - MATERNAL EXPOSURE DURING PREGNANCY [None]
